FAERS Safety Report 5735488-7 (Version None)
Quarter: 2008Q2

REPORT INFORMATION
  Report Type: 
  Country: None (occurrence: None)
  Receive Date: 20080512
  Receipt Date: 20080428
  Transmission Date: 20081010
  Serious: Yes (Other)
  Sender: FDA-Public Use
  Company Number: US-PFIZER INC-2008038392

PATIENT
  Sex: Female
  Weight: 79.545 kg

DRUGS (3)
  1. CHANTIX [Suspect]
     Indication: SMOKING CESSATION THERAPY
     Dosage: FREQ:DAILY
  2. HYDROCHLOROTHIAZIDE [Suspect]
     Indication: HYPERTENSION
  3. DIURETICS [Concomitant]

REACTIONS (6)
  - BLOOD URINE PRESENT [None]
  - BRONCHITIS [None]
  - DRUG INEFFECTIVE [None]
  - DYSURIA [None]
  - INFLUENZA [None]
  - NAUSEA [None]
